FAERS Safety Report 14195915 (Version 3)
Quarter: 2017Q4

REPORT INFORMATION
  Report Type: Spontaneous
  Country: US (occurrence: US)
  Receive Date: 20171116
  Receipt Date: 20171116
  Transmission Date: 20180321
  Serious: Yes (Hospitalization)
  Sender: FDA-Public Use
  Company Number: US-JUBILANT HOLLISTERSTIER LLC-2034331

PATIENT
  Age: 10 Year
  Sex: Male
  Weight: 36.77 kg

DRUGS (1)
  1. MOLDS, RUSTS AND SMUTS, HELMINTHOSPORIUM INTERSEMINATUM [Suspect]
     Active Substance: DENDRYPHIELLA VINOSA
     Indication: OFF LABEL USE
     Route: 058
     Dates: start: 20170831, end: 20171013

REACTIONS (7)
  - Angioedema [Recovered/Resolved]
  - Tachycardia [Recovered/Resolved]
  - Hyperhidrosis [Recovered/Resolved]
  - Apnoea test abnormal [Recovered/Resolved]
  - Agitation [Recovered/Resolved]
  - Hypoxia [Recovered/Resolved]
  - Incontinence [Recovered/Resolved]

NARRATIVE: CASE EVENT DATE: 20171013
